FAERS Safety Report 5533748-6 (Version None)
Quarter: 2007Q4

REPORT INFORMATION
  Report Type: 
  Country: None (occurrence: None)
  Receive Date: 20071204
  Receipt Date: 20071127
  Transmission Date: 20080405
  Serious: No
  Sender: FDA-Public Use
  Company Number: US-BOEHRINGER INGELHEIM PHARMACEUTICALS, INC.-2007-BP-25305BP

PATIENT
  Sex: Female

DRUGS (3)
  1. SPIRIVA [Suspect]
     Indication: DYSPNOEA
  2. ADVAIR HFA [Concomitant]
     Indication: DYSPNOEA
  3. OTHER PRESCRIPTION MEDICATION (UNSPECIFIED) [Concomitant]

REACTIONS (1)
  - PHARYNGOLARYNGEAL PAIN [None]
